FAERS Safety Report 25568080 (Version 1)
Quarter: 2025Q3

REPORT INFORMATION
  Report Type: Spontaneous
  Country: US (occurrence: None)
  Receive Date: 20250716
  Receipt Date: 20250716
  Transmission Date: 20251020
  Serious: Yes (Hospitalization)
  Sender: FDA-CTU
  Company Number: None

PATIENT
  Age: 46 Year
  Sex: Female

DRUGS (3)
  1. ZOLADEX [Suspect]
     Active Substance: GOSERELIN ACETATE
  2. KISQALI [Suspect]
     Active Substance: RIBOCICLIB SUCCINATE
  3. MIRALAX [Suspect]
     Active Substance: POLYETHYLENE GLYCOL 3350

REACTIONS (9)
  - Hot flush [None]
  - Nausea [None]
  - Abdominal pain upper [None]
  - Vomiting [None]
  - Constipation [None]
  - Haemorrhoids [None]
  - Bone pain [None]
  - Arthralgia [None]
  - Asthenia [None]
